FAERS Safety Report 15757313 (Version 3)
Quarter: 2018Q4

REPORT INFORMATION
  Report Type: Spontaneous
  Country: IT (occurrence: IT)
  Receive Date: 20181224
  Receipt Date: 20181224
  Transmission Date: 20190205
  Serious: Yes (Hospitalization)
  Sender: FDA-Public Use
  Company Number: PHHY2018IT187501

PATIENT
  Age: 63 Year
  Sex: Female

DRUGS (5)
  1. CIPROFLOXACIN. [Suspect]
     Active Substance: CIPROFLOXACIN
     Indication: KERATITIS
     Dosage: 500 MG, BID
     Route: 048
     Dates: start: 2015
  2. DEXAMETHASONE. [Suspect]
     Active Substance: DEXAMETHASONE
     Indication: KERATITIS
     Dosage: UNK
     Route: 061
     Dates: start: 2015
  3. ATROPINE. [Suspect]
     Active Substance: ATROPINE
     Indication: KERATITIS
     Dosage: 1 DRP, Q12H
     Route: 047
     Dates: start: 2015
  4. PREDNISONE. [Suspect]
     Active Substance: PREDNISONE
     Indication: KERATITIS
     Dosage: 25 MG, QD
     Route: 065
     Dates: start: 2015
  5. NETILMICIN [Suspect]
     Active Substance: NETILMICIN
     Indication: KERATITIS
     Dosage: UNK
     Route: 061
     Dates: start: 2015

REACTIONS (3)
  - Infection [Unknown]
  - Keratitis fungal [Unknown]
  - Product use in unapproved indication [Unknown]

NARRATIVE: CASE EVENT DATE: 2015
